FAERS Safety Report 4886992-5 (Version None)
Quarter: 2006Q1

REPORT INFORMATION
  Report Type: 
  Country: None (occurrence: None)
  Receive Date: 20060120
  Receipt Date: 20051005
  Transmission Date: 20060701
  Serious: Yes (Hospitalization, Disabling)
  Sender: FDA-Public Use
  Company Number: US-MERCK-0510USA03370

PATIENT
  Age: 46 Year
  Sex: Female
  Weight: 57 kg

DRUGS (8)
  1. VIOXX [Suspect]
     Indication: RHEUMATOID ARTHRITIS
     Route: 048
  2. FOLIC ACID [Concomitant]
     Route: 065
  3. K-DUR 10 [Concomitant]
     Route: 065
  4. ATENOLOL [Concomitant]
     Route: 065
  5. TRIAMTERENE [Concomitant]
     Route: 065
  6. GEMFIBROZIL [Concomitant]
     Route: 065
  7. SYNTHROID [Concomitant]
     Route: 065
  8. PREMARIN [Concomitant]
     Route: 065

REACTIONS (5)
  - GALLBLADDER DISORDER [None]
  - JOINT SPRAIN [None]
  - LOWER LIMB FRACTURE [None]
  - MYOCARDIAL INFARCTION [None]
  - TRANSIENT ISCHAEMIC ATTACK [None]
